FAERS Safety Report 12623818 (Version 1)
Quarter: 2016Q3

REPORT INFORMATION
  Report Type: Spontaneous
  Country: US (occurrence: US)
  Receive Date: 20160804
  Receipt Date: 20160804
  Transmission Date: 20161109
  Serious: No
  Sender: FDA-Public Use
  Company Number: US-JAZZ-2016-US-003699

PATIENT
  Age: 12 Year
  Sex: Male
  Weight: 35.37 kg

DRUGS (15)
  1. MEMANTINE. [Concomitant]
     Active Substance: MEMANTINE
     Indication: MIGRAINE
     Dosage: UNK
     Dates: start: 201512
  2. AMOXICILLIN. [Concomitant]
     Active Substance: AMOXICILLIN
  3. IBUPROFEN. [Concomitant]
     Active Substance: IBUPROFEN
  4. NAMENDA [Concomitant]
     Active Substance: MEMANTINE HYDROCHLORIDE
  5. ALEVE [Concomitant]
     Active Substance: NAPROXEN SODIUM
  6. NARATRIPTAN [Concomitant]
     Active Substance: NARATRIPTAN HYDROCHLORIDE
     Indication: MIGRAINE
     Dosage: UNK
  7. ERGOCALCIFEROL. [Concomitant]
     Active Substance: ERGOCALCIFEROL
  8. ESOMEPRAZOLE SODIUM. [Concomitant]
     Active Substance: ESOMEPRAZOLE SODIUM
  9. XYREM [Suspect]
     Active Substance: SODIUM OXYBATE
     Indication: NARCOLEPSY
     Dosage: 1.5 G, BID
     Route: 048
     Dates: start: 20160219
  10. BENZACLIN [Concomitant]
     Active Substance: BENZOYL PEROXIDE\CLINDAMYCIN PHOSPHATE
  11. MELATONIN [Concomitant]
     Active Substance: MELATONIN
  12. MIRALAX [Concomitant]
     Active Substance: POLYETHYLENE GLYCOL 3350
  13. MULTIVITAMINS [Concomitant]
     Active Substance: VITAMINS
  14. PROBIOTIC [Concomitant]
     Active Substance: PROBIOTICS NOS
  15. DESONIDE. [Concomitant]
     Active Substance: DESONIDE

REACTIONS (1)
  - Product use issue [Unknown]

NARRATIVE: CASE EVENT DATE: 20160219
